FAERS Safety Report 11992160 (Version 1)
Quarter: 2016Q1

REPORT INFORMATION
  Report Type: Spontaneous
  Country: US (occurrence: US)
  Receive Date: 20160203
  Receipt Date: 20160203
  Transmission Date: 20160526
  Serious: No
  Sender: FDA-Public Use
  Company Number: US-JNJFOC-20151217593

PATIENT
  Age: 10 Month
  Sex: Male

DRUGS (1)
  1. CHILDRENS TYLENOL [Suspect]
     Active Substance: ACETAMINOPHEN
     Indication: COCHLEA IMPLANT
     Route: 065

REACTIONS (5)
  - Product packaging issue [Unknown]
  - Drug administered to patient of inappropriate age [Unknown]
  - Product use issue [Unknown]
  - Product container seal issue [Unknown]
  - Off label use [Unknown]
